FAERS Safety Report 6732948-7 (Version None)
Quarter: 2010Q2

REPORT INFORMATION
  Report Type: 
  Country: None (occurrence: None)
  Receive Date: 20100517
  Receipt Date: 20100506
  Transmission Date: 20101027
  Serious: Yes (Hospitalization, Other)
  Sender: FDA-Public Use
  Company Number: A-US2007-16183

PATIENT
  Age: 61 Year
  Sex: Female
  Weight: 99.3 kg

DRUGS (4)
  1. TRACLEER [Suspect]
     Indication: PULMONARY ARTERIAL HYPERTENSION
     Dosage: 125 MG, BID, ORAL; ORAL; 62.5 MG, BID, ORAL
     Route: 048
     Dates: start: 20090622, end: 20090701
  2. TRACLEER [Suspect]
     Indication: PULMONARY ARTERIAL HYPERTENSION
     Dosage: 125 MG, BID, ORAL; ORAL; 62.5 MG, BID, ORAL
     Route: 048
     Dates: start: 20090612, end: 20100102
  3. TRACLEER [Suspect]
     Indication: PULMONARY ARTERIAL HYPERTENSION
     Dosage: 125 MG, BID, ORAL; ORAL; 62.5 MG, BID, ORAL
     Route: 048
     Dates: start: 20090701, end: 20100223
  4. TRACLEER [Suspect]
     Indication: PULMONARY ARTERIAL HYPERTENSION
     Dosage: 125 MG, BID, ORAL; ORAL; 62.5 MG, BID, ORAL
     Route: 048
     Dates: start: 20050916

REACTIONS (5)
  - ASPARTATE AMINOTRANSFERASE INCREASED [None]
  - CHOLECYSTITIS [None]
  - COUGH [None]
  - LIVER DISORDER [None]
  - SINUSITIS [None]
